FAERS Safety Report 21021013 (Version 2)
Quarter: 2023Q1

REPORT INFORMATION
  Report Type: Spontaneous
  Country: US (occurrence: US)
  Receive Date: 20220629
  Receipt Date: 20230109
  Transmission Date: 20230417
  Serious: No
  Sender: FDA-Public Use
  Company Number: US-PHARMING-PHAUS2022000414

PATIENT

DRUGS (3)
  1. RUCONEST [Suspect]
     Active Substance: HUMAN C1-ESTERASE INHIBITOR
     Indication: Hereditary angioedema
     Dosage: 2100 IU, EVERY 2 WEEKS AS NEEDED
     Route: 042
     Dates: start: 20181204
  2. RUCONEST [Suspect]
     Active Substance: HUMAN C1-ESTERASE INHIBITOR
     Dosage: 2100 IU, EVERY 2 WEEKS AS NEEDED
     Route: 042
     Dates: start: 20181204
  3. RUCONEST [Suspect]
     Active Substance: HUMAN C1-ESTERASE INHIBITOR
     Dosage: 2100 IU, EVERY 2 WEEKS AS NEEDED
     Route: 042
     Dates: start: 20181204

REACTIONS (1)
  - Headache [Unknown]
